FAERS Safety Report 8821566 (Version 1)
Quarter: 2012Q4

REPORT INFORMATION
  Report Type: 
  Country: NO (occurrence: NO)
  Receive Date: 20121002
  Receipt Date: 20121002
  Transmission Date: 20130627
  Serious: Yes (Disabling)
  Sender: FDA-Public Use
  Company Number: PHHY2012NO080885

PATIENT
  Age: 75 Year
  Sex: Female

DRUGS (3)
  1. SCOPODERM TTS [Suspect]
     Indication: MOTION SICKNESS
     Dosage: 1 mg, Q72H
     Route: 062
     Dates: start: 20120623, end: 20120625
  2. CALCIUM CARBONATE [Concomitant]
     Dosage: Unk, Unk
  3. ALENDRONIC ACID [Concomitant]
     Dosage: 70 mg, QW
     Route: 048
     Dates: start: 2009

REACTIONS (4)
  - Speech disorder [Recovered/Resolved]
  - Cognitive disorder [Recovered/Resolved]
  - Balance disorder [Recovered/Resolved]
  - Confusional state [Recovered/Resolved]
